FAERS Safety Report 6562540-9 (Version None)
Quarter: 2010Q1

REPORT INFORMATION
  Report Type: 
  Country: None (occurrence: None)
  Receive Date: 20100130
  Receipt Date: 20091114
  Transmission Date: 20100710
  Serious: No
  Sender: FDA-Public Use
  Company Number: US-ABBOTT-09P-163-0608514-00

PATIENT
  Sex: Female
  Weight: 99.88 kg

DRUGS (3)
  1. HUMIRA [Suspect]
     Indication: CROHN'S DISEASE
     Dosage: DAY 1;160MG
     Dates: start: 20091017, end: 20091017
  2. HUMIRA [Suspect]
     Dosage: 80MG
     Dates: start: 20091031, end: 20091031
  3. HUMIRA [Suspect]
     Dates: start: 20091114

REACTIONS (1)
  - INJECTION SITE URTICARIA [None]
